FAERS Safety Report 14090633 (Version 1)
Quarter: 2017Q4

REPORT INFORMATION
  Report Type: Spontaneous
  Country: US (occurrence: US)
  Receive Date: 20171015
  Receipt Date: 20171015
  Transmission Date: 20180321
  Serious: No
  Sender: FDA-Public Use
  Company Number: US-SA-2017SA135544

PATIENT
  Age: 43 Year
  Sex: Female

DRUGS (6)
  1. NORVASC [Concomitant]
     Active Substance: AMLODIPINE BESYLATE
  2. NOVOLOG [Concomitant]
     Active Substance: INSULIN ASPART
  3. AUBAGIO [Suspect]
     Active Substance: TERIFLUNOMIDE
     Indication: MULTIPLE SCLEROSIS
     Route: 048
  4. TOUJEO [Concomitant]
     Active Substance: INSULIN GLARGINE
  5. LEVOTHYROXINE SODIUM. [Concomitant]
     Active Substance: LEVOTHYROXINE SODIUM
  6. SOLOSTAR [Concomitant]
     Active Substance: DEVICE

REACTIONS (1)
  - Pruritus [Unknown]
